FAERS Safety Report 4676305-6 (Version None)
Quarter: 2005Q2

REPORT INFORMATION
  Report Type: 
  Country: None (occurrence: None)
  Receive Date: 20050527
  Receipt Date: 20050217
  Transmission Date: 20051028
  Serious: No
  Sender: FDA-Public Use
  Company Number: US-GLAXOSMITHKLINE-A0546049A

PATIENT
  Age: 61 Year
  Sex: Female
  Weight: 78.2 kg

DRUGS (3)
  1. WELLBUTRIN XL [Suspect]
     Indication: DEPRESSION
     Dosage: 300MG PER DAY
     Route: 048
     Dates: start: 20040401
  2. XANAX [Concomitant]
  3. AMBIEN [Concomitant]

REACTIONS (4)
  - ALOPECIA [None]
  - ENERGY INCREASED [None]
  - INSOMNIA [None]
  - THYROID FUNCTION TEST ABNORMAL [None]
